FAERS Safety Report 18336875 (Version 2)
Quarter: 2020Q4

REPORT INFORMATION
  Report Type: Spontaneous
  Country: US (occurrence: US)
  Receive Date: 20201001
  Receipt Date: 20201112
  Transmission Date: 20210113
  Serious: No
  Sender: FDA-Public Use
  Company Number: US-009507513-2009USA011673

PATIENT
  Age: 69 Year
  Sex: Male
  Weight: 82.99 kg

DRUGS (2)
  1. JANUVIA [Suspect]
     Active Substance: SITAGLIPTIN PHOSPHATE
     Indication: DIABETES MELLITUS
     Dosage: 100 MG/ONCE DAILY
     Route: 048
     Dates: start: 20200104
  2. JANUVIA [Suspect]
     Active Substance: SITAGLIPTIN PHOSPHATE
     Dosage: 100 MILLIGRAM,TWICE DAILY/2 PILLS A DAY
     Route: 048
     Dates: start: 2020

REACTIONS (3)
  - Overdose [Unknown]
  - Blood glucose increased [Unknown]
  - Expired product administered [Unknown]

NARRATIVE: CASE EVENT DATE: 2020
